FAERS Safety Report 4821418-9 (Version None)
Quarter: 2005Q4

REPORT INFORMATION
  Report Type: 
  Country: None (occurrence: None)
  Receive Date: 20051104
  Receipt Date: 20051104
  Transmission Date: 20060501
  Serious: No
  Sender: FDA-Public Use
  Company Number: None

PATIENT

DRUGS (1)
  1. SODIUM BICARBONATE [Suspect]
     Dosage: INJECTABLE

REACTIONS (5)
  - DYSPNOEA [None]
  - INCORRECT DRUG ADMINISTRATION DURATION [None]
  - MEDICATION ERROR [None]
  - RESPIRATORY FAILURE [None]
  - WHEEZING [None]
